FAERS Safety Report 25036277 (Version 1)
Quarter: 2025Q1

REPORT INFORMATION
  Report Type: Spontaneous
  Country: DE (occurrence: DE)
  Receive Date: 20250304
  Receipt Date: 20250304
  Transmission Date: 20250409
  Serious: Yes (Other)
  Sender: MYLAN
  Company Number: DE-MYLANLABS-2025M1016724

PATIENT
  Sex: Female

DRUGS (8)
  1. MYCOPHENOLATE MOFETIL [Suspect]
     Active Substance: MYCOPHENOLATE MOFETIL
     Indication: Antisynthetase syndrome
  2. TACROLIMUS [Suspect]
     Active Substance: TACROLIMUS
     Indication: Antisynthetase syndrome
  3. CYCLOPHOSPHAMIDE [Suspect]
     Active Substance: CYCLOPHOSPHAMIDE
     Indication: Antisynthetase syndrome
  4. TOFACITINIB [Suspect]
     Active Substance: TOFACITINIB
     Indication: Antisynthetase syndrome
  5. TOCILIZUMAB [Suspect]
     Active Substance: TOCILIZUMAB
     Indication: Antisynthetase syndrome
  6. IMMUNE GLOBULIN NOS [Suspect]
     Active Substance: IMMUNE GLOBULIN NOS
     Indication: Antisynthetase syndrome
  7. RITUXIMAB [Suspect]
     Active Substance: RITUXIMAB
     Indication: Antisynthetase syndrome
  8. OCRELIZUMAB [Suspect]
     Active Substance: OCRELIZUMAB
     Indication: Antisynthetase syndrome

REACTIONS (2)
  - Drug ineffective for unapproved indication [Unknown]
  - Off label use [Unknown]
